FAERS Safety Report 19239084 (Version 2)
Quarter: 2021Q2

REPORT INFORMATION
  Report Type: Spontaneous
  Country: GB (occurrence: GB)
  Receive Date: 20210510
  Receipt Date: 20210607
  Transmission Date: 20210717
  Serious: Yes (Hospitalization, Disabling, Other)
  Sender: FDA-Public Use
  Company Number: GB-TEVA-2021-GB-1908855

PATIENT
  Age: 36 Year
  Sex: Female
  Weight: 70 kg

DRUGS (13)
  1. BETNOVATE [Suspect]
     Active Substance: BETAMETHASONE
     Indication: ILL-DEFINED DISORDER
     Dosage: AS NEEDED ON AFFECTED AREAS
     Route: 061
     Dates: start: 2018, end: 20181115
  2. PROTOPIC [Suspect]
     Active Substance: TACROLIMUS
     Indication: ILL-DEFINED DISORDER
     Dosage: AS NEEDED ON AFFECTED AREAS
     Route: 061
     Dates: start: 2017, end: 20181115
  3. PREDNISONE. [Suspect]
     Active Substance: PREDNISONE
     Indication: ILL-DEFINED DISORDER
     Dosage: 60 MILLIGRAM DAILY; TAPERING OFF SLOWLY
     Route: 048
     Dates: start: 201808, end: 201810
  4. PARACETAMOL [Concomitant]
     Active Substance: ACETAMINOPHEN
     Indication: ILL-DEFINED DISORDER
  5. HYDROCORTISONE. [Suspect]
     Active Substance: HYDROCORTISONE
     Indication: ILL-DEFINED DISORDER
     Dosage: AS NEEDED ON AFFECTED AREAS
     Route: 061
     Dates: start: 1985, end: 20181115
  6. HYDROCORTISONE. [Suspect]
     Active Substance: HYDROCORTISONE
     Indication: ECZEMA
  7. EUMOVATE [Suspect]
     Active Substance: CLOBETASONE BUTYRATE
     Indication: ILL-DEFINED DISORDER
     Dosage: AS NEEDED ON AFFECTED AREAS
     Route: 061
     Dates: start: 2016, end: 20181115
  8. EUMOVATE [Suspect]
     Active Substance: CLOBETASONE BUTYRATE
     Indication: ECZEMA
  9. PROTOPIC [Suspect]
     Active Substance: TACROLIMUS
     Indication: ECZEMA
  10. IBUPROFEN. [Concomitant]
     Active Substance: IBUPROFEN
     Indication: ILL-DEFINED DISORDER
  11. LORATADINE. [Concomitant]
     Active Substance: LORATADINE
     Indication: ILL-DEFINED DISORDER
  12. BETNOVATE [Suspect]
     Active Substance: BETAMETHASONE
     Indication: ECZEMA
  13. PREDNISONE. [Suspect]
     Active Substance: PREDNISONE
     Indication: ECZEMA

REACTIONS (18)
  - Alopecia [Recovered/Resolved]
  - Tremor [Recovered/Resolved]
  - Incorrect product administration duration [Unknown]
  - Enzyme abnormality [Recovered/Resolved]
  - Insomnia [Recovered/Resolved]
  - Skin burning sensation [Recovered/Resolved with Sequelae]
  - Urticaria [Not Recovered/Not Resolved]
  - Skin wrinkling [Recovered/Resolved with Sequelae]
  - Scab [Not Recovered/Not Resolved]
  - Fatigue [Not Recovered/Not Resolved]
  - Eye discharge [Not Recovered/Not Resolved]
  - Pyrexia [Recovered/Resolved]
  - Anxiety [Not Recovered/Not Resolved]
  - Eye swelling [Recovering/Resolving]
  - Skin exfoliation [Not Recovered/Not Resolved]
  - Weight decreased [Recovered/Resolved]
  - Pruritus [Recovered/Resolved with Sequelae]
  - Peripheral swelling [Recovered/Resolved]

NARRATIVE: CASE EVENT DATE: 2016
